FAERS Safety Report 4554222-X (Version None)
Quarter: 2005Q1

REPORT INFORMATION
  Report Type: 
  Country: None (occurrence: None)
  Receive Date: 20050118
  Receipt Date: 20050104
  Transmission Date: 20050727
  Serious: Yes (Hospitalization)
  Sender: FDA-Public Use
  Company Number: 200510069FR

PATIENT
  Age: 48 Year
  Sex: Female
  Weight: 84 kg

DRUGS (5)
  1. TAXOTERE [Suspect]
     Route: 042
     Dates: start: 20020915
  2. FARMORUBICINE [Suspect]
     Route: 042
     Dates: start: 20020915
  3. NEUPOGEN [Suspect]
     Route: 042
     Dates: start: 20020915
  4. HERCEPTIN [Concomitant]
     Dates: start: 20031201
  5. TAXOL [Concomitant]
     Dates: start: 20031201

REACTIONS (3)
  - HAEMANGIOMA [None]
  - LIVER DISORDER [None]
  - SPLEEN DISORDER [None]
